FAERS Safety Report 14627071 (Version 1)
Quarter: 2018Q1

REPORT INFORMATION
  Report Type: Report from Study
  Country: US (occurrence: US)
  Receive Date: 20180312
  Receipt Date: 20180312
  Transmission Date: 20180509
  Serious: Yes (Death, Other)
  Sender: FDA-Public Use
  Company Number: US-JNJFOC-20171134436

PATIENT
  Sex: Male

DRUGS (6)
  1. LIPITOR [Concomitant]
     Active Substance: ATORVASTATIN CALCIUM
  2. ZOFRAN [Concomitant]
     Active Substance: ONDANSETRON HYDROCHLORIDE
  3. HALDOL [Concomitant]
     Active Substance: HALOPERIDOL
  4. ATIVAN [Concomitant]
     Active Substance: LORAZEPAM
  5. DULCOLAX NOS [Concomitant]
     Active Substance: BISACODYL OR DOCUSATE SODIUM
  6. IMBRUVICA [Suspect]
     Active Substance: IBRUTINIB
     Indication: CHRONIC LYMPHOCYTIC LEUKAEMIA
     Route: 048
     Dates: start: 20171024, end: 20171108

REACTIONS (8)
  - Dyspnoea [Unknown]
  - Mouth haemorrhage [Unknown]
  - Disease progression [Fatal]
  - Contusion [Unknown]
  - Cerebral haemorrhage [Unknown]
  - Anxiety [Unknown]
  - Pain in extremity [Unknown]
  - Skin haemorrhage [Unknown]
